FAERS Safety Report 8252693-9 (Version None)
Quarter: 2012Q2

REPORT INFORMATION
  Report Type: 
  Country: None (occurrence: None)
  Receive Date: 20120402
  Receipt Date: 20110826
  Transmission Date: 20120825
  Serious: No
  Sender: FDA-Public Use
  Company Number: US-ABBOTT-11P-163-0849963-00

PATIENT
  Sex: Male
  Weight: 65.83 kg

DRUGS (8)
  1. CIALIS [Concomitant]
     Indication: ERECTILE DYSFUNCTION
  2. COUMADIN [Concomitant]
     Indication: DEEP VEIN THROMBOSIS
  3. UNKNOWN BLOOD PRESSURE MEDICATION [Concomitant]
     Indication: HYPERTENSION
  4. VITAMIN D [Concomitant]
     Indication: PRODUCT USED FOR UNKNOWN INDICATION
  5. LORAZEPAM [Concomitant]
     Indication: INSOMNIA
  6. ANDROGEL [Suspect]
     Indication: BLOOD TESTOSTERONE DECREASED
  7. VITAMIN B-12 [Concomitant]
     Indication: PRODUCT USED FOR UNKNOWN INDICATION
  8. CALCIUM CARBONATE [Concomitant]
     Indication: PRODUCT USED FOR UNKNOWN INDICATION

REACTIONS (2)
  - WOUND [None]
  - INJURY [None]
